FAERS Safety Report 7818182-8 (Version None)
Quarter: 2011Q4

REPORT INFORMATION
  Report Type: 
  Country: None (occurrence: None)
  Receive Date: 20111017
  Receipt Date: 20111004
  Transmission Date: 20120403
  Serious: Yes (Other)
  Sender: FDA-Public Use
  Company Number: US-ELI_LILLY_AND_COMPANY-US201110001217

PATIENT
  Sex: Female

DRUGS (2)
  1. HUMALOG [Suspect]
     Dosage: UNK, PRN
     Dates: start: 20110902
  2. HUMALOG [Suspect]
     Indication: DIABETES MELLITUS
     Dosage: UNK, TID
     Dates: start: 20110902

REACTIONS (2)
  - INCORRECT DOSE ADMINISTERED [None]
  - BLINDNESS [None]
